FAERS Safety Report 14790103 (Version 6)
Quarter: 2019Q4

REPORT INFORMATION
  Report Type: Spontaneous
  Country: CZ (occurrence: CZ)
  Receive Date: 20180423
  Receipt Date: 20191231
  Transmission Date: 20200122
  Serious: Yes (Death, Other)
  Sender: FDA-Public Use
  Company Number: CZ-MYLANLABS-2018M1025868

PATIENT
  Age: 61 Year
  Sex: Female

DRUGS (14)
  1. BEVACIZUMAB. [Suspect]
     Active Substance: BEVACIZUMAB
     Indication: COLORECTAL CANCER
     Dosage: UNK UNK, CYCLE FOLFOX FOLFIRI
     Route: 065
     Dates: start: 20140623
  2. AFLIBERCEPT [Suspect]
     Active Substance: AFLIBERCEPT
     Indication: PRODUCT USED FOR UNKNOWN INDICATION
     Dosage: FOLFOX FOLFIRI
     Dates: start: 20140908, end: 20160111
  3. FLUOROURACIL. [Suspect]
     Active Substance: FLUOROURACIL
     Indication: COLORECTAL CANCER
     Dosage: FOLFOX FOLFIRI, CYCLE
     Route: 065
     Dates: start: 201211
  4. IRINOTECAN [Suspect]
     Active Substance: IRINOTECAN
     Dosage: IN FOLFOX REGIMEN
     Route: 042
     Dates: start: 20140623
  5. CALCIUM FOLINATE [Suspect]
     Active Substance: LEUCOVORIN CALCIUM
     Indication: COLORECTAL CANCER METASTATIC
     Dosage: UNK
     Route: 065
     Dates: start: 201406
  6. OXALIPLATIN. [Suspect]
     Active Substance: OXALIPLATIN
     Indication: COLORECTAL CANCER
     Dosage: FOLFOX FOLFIRI
     Route: 042
     Dates: start: 201211
  7. IRINOTECAN [Suspect]
     Active Substance: IRINOTECAN
     Indication: COLORECTAL CANCER
     Dosage: FOLFOX FOLFIRI, CYCLE
     Route: 065
     Dates: start: 20140908
  8. IRINOTECAN [Suspect]
     Active Substance: IRINOTECAN
     Dosage: IN FOLFOX REGIMEN
     Route: 042
     Dates: start: 20160625, end: 201704
  9. FLUOROURACIL. [Suspect]
     Active Substance: FLUOROURACIL
     Indication: COLORECTAL CANCER METASTATIC
     Dosage: UNK
     Route: 065
     Dates: start: 201406
  10. IRINOTECAN [Suspect]
     Active Substance: IRINOTECAN
     Dosage: FOLFIRI ; CYCLICAL
     Route: 065
     Dates: start: 201211
  11. FOLINIC ACID [Suspect]
     Active Substance: LEUCOVORIN
     Indication: COLORECTAL CANCER
     Dosage: FOLFOX FOLFIRI, CYCLE
     Route: 065
     Dates: start: 201211
  12. OXALIPLATIN. [Suspect]
     Active Substance: OXALIPLATIN
     Indication: COLORECTAL CANCER METASTATIC
     Dosage: UNK
     Route: 042
     Dates: start: 201406, end: 201408
  13. IRINOTECAN [Suspect]
     Active Substance: IRINOTECAN
     Indication: ADENOCARCINOMA
     Dosage: FOLFOX FOLFIRI, CYCLE
     Route: 065
     Dates: start: 201409
  14. BEVACIZUMAB. [Suspect]
     Active Substance: BEVACIZUMAB
     Dosage: 1 DOSAGE FORM, CYCLE
     Route: 042
     Dates: start: 201406, end: 201408

REACTIONS (9)
  - Colorectal cancer metastatic [Unknown]
  - Off label use [Unknown]
  - Disease progression [Fatal]
  - Adenocarcinoma [Recovered/Resolved]
  - Fatigue [Unknown]
  - Hypertension [Recovered/Resolved]
  - Thrombocytopenia [Recovered/Resolved]
  - Diarrhoea [Recovered/Resolved]
  - Drug ineffective [Recovered/Resolved]

NARRATIVE: CASE EVENT DATE: 2014
